FAERS Safety Report 14020220 (Version 11)
Quarter: 2018Q1

REPORT INFORMATION
  Report Type: Report from Study
  Country: US (occurrence: US)
  Receive Date: 20170928
  Receipt Date: 20180326
  Transmission Date: 20180508
  Serious: Yes (Hospitalization)
  Sender: FDA-Public Use
  Company Number: US-PFIZER INC-2017395740

PATIENT
  Age: 52 Year
  Sex: Female
  Weight: 68.7 kg

DRUGS (9)
  1. PEMBROLIZUMAB. [Suspect]
     Active Substance: PEMBROLIZUMAB
     Dosage: 200 MG, Q3W (EVERY 3 WEEKS)
     Route: 042
     Dates: start: 20170928
  2. AMLODIPINE [Concomitant]
     Active Substance: AMLODIPINE BESYLATE
     Dosage: 10 MG, UNK
     Dates: start: 20170821
  3. AXITINIB [Suspect]
     Active Substance: AXITINIB
     Indication: RENAL CELL CARCINOMA
     Dosage: 5 MG, 2X/DAY (BID)
     Route: 048
     Dates: start: 20170817, end: 20170902
  4. AXITINIB [Suspect]
     Active Substance: AXITINIB
     Dosage: 5 MG, SINGLE
     Route: 048
     Dates: start: 20170903, end: 20170903
  5. CETIRIZINE HYDROCHLORIDE. [Concomitant]
     Active Substance: CETIRIZINE HYDROCHLORIDE
     Dosage: 10 MG, UNK
     Dates: start: 201504
  6. PEMBROLIZUMAB. [Suspect]
     Active Substance: PEMBROLIZUMAB
     Indication: RENAL CELL CARCINOMA
     Dosage: 200 MG, Q3W (EVERY THREE WEEKS (Q3W), VOLUME OF INFUSION: 118 ML)
     Route: 042
     Dates: start: 20170817, end: 20170817
  7. IRON (+) VITAMINS [Concomitant]
     Dosage: 1 DF, UNK
     Dates: start: 201601
  8. AXITINIB [Suspect]
     Active Substance: AXITINIB
     Dosage: 5 MG, 2X/DAY (BID)
     Route: 048
     Dates: start: 20170919
  9. IBUPROFEN. [Concomitant]
     Active Substance: IBUPROFEN
     Dosage: 200 MG, UNK
     Dates: start: 199501

REACTIONS (2)
  - Atrial flutter [Recovered/Resolved]
  - Hyperthyroidism [Recovered/Resolved]

NARRATIVE: CASE EVENT DATE: 20170901
